FAERS Safety Report 11274276 (Version 1)
Quarter: 2015Q3

REPORT INFORMATION
  Report Type: Spontaneous
  Country: CN (occurrence: CN)
  Receive Date: 20150715
  Receipt Date: 20150715
  Transmission Date: 20151125
  Serious: Yes (Hospitalization)
  Sender: FDA-Public Use
  Company Number: CN-ELI_LILLY_AND_COMPANY-CN201507005117

PATIENT
  Age: 51 Year
  Sex: Male

DRUGS (7)
  1. LISPRO [Suspect]
     Active Substance: INSULIN LISPRO
     Dosage: 8 IU, EACH MORNING
     Route: 065
  2. LISPRO [Suspect]
     Active Substance: INSULIN LISPRO
     Dosage: 6 IU, EACH MORNING
     Route: 065
  3. LISPRO [Suspect]
     Active Substance: INSULIN LISPRO
     Indication: PRODUCT USED FOR UNKNOWN INDICATION
     Dosage: 30 IU, EACH MORNING
     Route: 065
  4. LISPRO [Suspect]
     Active Substance: INSULIN LISPRO
     Dosage: 6 IU, EACH EVENING
     Route: 065
  5. LISPRO [Suspect]
     Active Substance: INSULIN LISPRO
     Dosage: 4 IU, EACH EVENING
     Route: 065
  6. LISPRO [Suspect]
     Active Substance: INSULIN LISPRO
     Dosage: 20 IU, EACH EVENING
     Route: 065
  7. AMLODIPINE BESILATE [Concomitant]
     Active Substance: AMLODIPINE BESYLATE
     Indication: BLOOD PRESSURE MEASUREMENT
     Route: 065

REACTIONS (12)
  - Hypoglycaemia [Recovered/Resolved]
  - Weight increased [Recovered/Resolved]
  - Dizziness [Recovered/Resolved]
  - Chest discomfort [Recovered/Resolved]
  - Dry mouth [Recovered/Resolved]
  - Hepatic steatosis [Recovered/Resolved]
  - Arteriosclerosis [Recovered/Resolved]
  - Asthenia [Recovered/Resolved]
  - Hyperhidrosis [Recovered/Resolved]
  - Hunger [Recovered/Resolved]
  - Polydipsia [Recovered/Resolved]
  - Overdose [Recovered/Resolved]
